FAERS Safety Report 14792998 (Version 1)
Quarter: 2018Q2

REPORT INFORMATION
  Report Type: Spontaneous
  Country: US (occurrence: US)
  Receive Date: 20180423
  Receipt Date: 20180423
  Transmission Date: 20180711
  Serious: No
  Sender: FDA-Public Use
  Company Number: US-ARBOR PHARMACEUTICALS, LLC-US-2017ARB000508

PATIENT

DRUGS (2)
  1. ERYTHROMYCIN. [Suspect]
     Active Substance: ERYTHROMYCIN
     Indication: GASTROOESOPHAGEAL REFLUX DISEASE
     Dosage: 0.5 DF, BID, BEFORE MEALS
     Route: 048
  2. PRILOSEC [Concomitant]
     Active Substance: OMEPRAZOLE MAGNESIUM
     Indication: GASTROOESOPHAGEAL REFLUX DISEASE
     Dosage: UNK, BID, BEFORE MEALS
     Route: 048

REACTIONS (2)
  - Product use in unapproved indication [Unknown]
  - Malaise [Unknown]
